FAERS Safety Report 22831805 (Version 3)
Quarter: 2023Q4

REPORT INFORMATION
  Report Type: Spontaneous
  Country: FI (occurrence: FI)
  Receive Date: 20230817
  Receipt Date: 20231002
  Transmission Date: 20240110
  Serious: Yes (Hospitalization)
  Sender: FDA-Public Use
  Company Number: FI-ABBVIE-5365189

PATIENT
  Sex: Female

DRUGS (3)
  1. RINVOQ [Suspect]
     Active Substance: UPADACITINIB
     Indication: Colitis ulcerative
     Dosage: STRENGTH: 15 MG??DISCONTINUED DATE 2023
     Route: 048
     Dates: start: 20230725
  2. RINVOQ [Suspect]
     Active Substance: UPADACITINIB
     Indication: Colitis ulcerative
     Dosage: STRENGTH: 45 MG
     Route: 048
     Dates: start: 202306, end: 20230724
  3. CORTISONE [Concomitant]
     Active Substance: CORTISONE
     Indication: Product used for unknown indication

REACTIONS (6)
  - Colitis ulcerative [Unknown]
  - Malabsorption [Unknown]
  - Therapeutic product effect decreased [Unknown]
  - Gastrointestinal disorder [Not Recovered/Not Resolved]
  - Poor quality product administered [Unknown]
  - Frequent bowel movements [Not Recovered/Not Resolved]

NARRATIVE: CASE EVENT DATE: 20230101
